FAERS Safety Report 16732245 (Version 1)
Quarter: 2019Q3

REPORT INFORMATION
  Report Type: Spontaneous
  Country: GB (occurrence: GB)
  Receive Date: 20190822
  Receipt Date: 20190822
  Transmission Date: 20191005
  Serious: Yes (Other)
  Sender: FDA-Public Use
  Company Number: PHHY2019GB191826

PATIENT
  Age: 98 Year
  Sex: Female
  Weight: 65 kg

DRUGS (1)
  1. QUETIAPINE. [Suspect]
     Active Substance: QUETIAPINE
     Indication: PRODUCT USED FOR UNKNOWN INDICATION
     Dosage: 12.5 MG, QD (HALF A TABLET IN THE MORNING)
     Route: 002
     Dates: start: 20190618

REACTIONS (4)
  - Hypersomnia [Unknown]
  - Depressed level of consciousness [Unknown]
  - Hypotension [Unknown]
  - Brain hypoxia [Recovered/Resolved]

NARRATIVE: CASE EVENT DATE: 20190704
